FAERS Safety Report 10015962 (Version 1)
Quarter: 2014Q1

REPORT INFORMATION
  Report Type: Report from Study
  Country: US (occurrence: US)
  Receive Date: 20140317
  Receipt Date: 20140317
  Transmission Date: 20141002
  Serious: Yes (Death, Other)
  Sender: FDA-Public Use
  Company Number: US-BAXTER-2014BAX013120

PATIENT
  Age: 67 Year
  Sex: Male

DRUGS (4)
  1. GAMMAGARD LIQUID [Suspect]
     Indication: PULMONARY ALVEOLAR HAEMORRHAGE
     Dosage: 1 GM/KG
     Route: 042
  2. GAMMAGARD LIQUID [Suspect]
     Indication: ANTIPHOSPHOLIPID SYNDROME
  3. RITUXIMAB [Suspect]
     Indication: PULMONARY ALVEOLAR HAEMORRHAGE
     Dosage: X 3 DOSES
     Route: 065
  4. RITUXIMAB [Suspect]
     Indication: ANTIPHOSPHOLIPID SYNDROME

REACTIONS (2)
  - Disease progression [Unknown]
  - Pulmonary alveolar haemorrhage [Fatal]
